FAERS Safety Report 22661895 (Version 1)
Quarter: 2023Q2

REPORT INFORMATION
  Report Type: Spontaneous
  Country: AU (occurrence: AU)
  Receive Date: 20230630
  Receipt Date: 20230630
  Transmission Date: 20230722
  Serious: Yes (Hospitalization, Other)
  Sender: FDA-Public Use
  Company Number: AU-NAPPMUNDI-GBR-2023-0108776

PATIENT
  Age: 85 Year
  Sex: Male

DRUGS (15)
  1. BUPRENORPHINE [Suspect]
     Active Substance: BUPRENORPHINE
     Indication: Arthralgia
     Dosage: 10 MCG/HR WEEKLY
     Route: 062
     Dates: start: 20230325
  2. BUPRENORPHINE [Suspect]
     Active Substance: BUPRENORPHINE
     Indication: Back pain
  3. Coloxyl [Concomitant]
     Indication: Rectal prolapse
     Dosage: 2 TABLET, QD PRN
     Route: 048
     Dates: start: 20220319
  4. PANTOPRAZOLE [Concomitant]
     Active Substance: PANTOPRAZOLE
     Indication: Prophylaxis
     Dosage: 80 MILLIGRAM
     Route: 041
  5. ENOXAPARIN [Concomitant]
     Active Substance: ENOXAPARIN
     Indication: Product used for unknown indication
     Dosage: 40 MILLIGRAM
     Route: 058
  6. DOCUSATE SODIUM\SENNOSIDES A AND B [Concomitant]
     Active Substance: DOCUSATE SODIUM\SENNOSIDES A AND B
     Indication: Product used for unknown indication
     Dosage: 2 TABLET, BID
     Route: 048
  7. COLCHICINE [Concomitant]
     Active Substance: COLCHICINE
     Indication: Product used for unknown indication
     Dosage: 1000 MCG
     Route: 048
     Dates: start: 20230411
  8. COLCHICINE [Concomitant]
     Active Substance: COLCHICINE
     Dosage: 500 MCG
     Route: 048
     Dates: start: 20230411
  9. PREDNISOLONE [Concomitant]
     Active Substance: PREDNISOLONE
     Indication: Product used for unknown indication
     Dosage: 25 MILLIGRAM
     Route: 048
  10. ASPIRIN [Concomitant]
     Active Substance: ASPIRIN
     Indication: Coronary artery disease
     Dosage: 100 MILLIGRAM, DAILY
     Route: 048
     Dates: start: 20181213
  11. ROSUVASTATIN [Concomitant]
     Active Substance: ROSUVASTATIN
     Indication: Coronary artery disease
     Dosage: 40 MILLIGRAM, QD PRN
     Route: 048
     Dates: start: 20181213
  12. FUROSEMIDE [Concomitant]
     Active Substance: FUROSEMIDE
     Indication: Amyloidosis
     Dosage: 40 MILLIGRAM, QD PRN
     Route: 048
     Dates: start: 20220923
  13. LEVOTHYROXINE [Concomitant]
     Active Substance: LEVOTHYROXINE
     Indication: Hypothyroidism
     Dosage: 100 MILLIGRAM, QD PRN
     Route: 048
     Dates: start: 20200302
  14. OMEPRAZOLE [Concomitant]
     Active Substance: OMEPRAZOLE
     Indication: Oesophagitis
     Dosage: 20 MILLIGRAM, QD PRN
     Route: 048
     Dates: start: 20230323
  15. ACETAMINOPHEN [Concomitant]
     Active Substance: ACETAMINOPHEN
     Indication: Arthritis
     Dosage: 2000 MILLIGRAM, QD PRN
     Route: 048
     Dates: start: 20221111

REACTIONS (6)
  - Urinary retention [Recovered/Resolved with Sequelae]
  - Constipation [Recovered/Resolved]
  - Chondrocalcinosis [Recovered/Resolved]
  - Diarrhoea [Unknown]
  - Abdominal discomfort [Unknown]
  - Abdominal pain [Unknown]

NARRATIVE: CASE EVENT DATE: 20230404
